FAERS Safety Report 5733326-X (Version None)
Quarter: 2008Q2

REPORT INFORMATION
  Report Type: 
  Country: None (occurrence: None)
  Receive Date: 20080507
  Receipt Date: 20080501
  Transmission Date: 20081010
  Serious: Yes (Death, Hospitalization)
  Sender: FDA-Public Use
  Company Number: 2008SP008248

PATIENT
  Age: 66 Year
  Sex: Male

DRUGS (1)
  1. NOXAFIL [Suspect]
     Indication: NEUTROPENIA
     Dosage: PO
     Route: 048

REACTIONS (3)
  - FEBRILE NEUTROPENIA [None]
  - HYPOTENSION [None]
  - SEPSIS [None]
